FAERS Safety Report 20736193 (Version 2)
Quarter: 2022Q2

REPORT INFORMATION
  Report Type: Spontaneous
  Country: US (occurrence: US)
  Receive Date: 20220421
  Receipt Date: 20220518
  Transmission Date: 20220721
  Serious: No
  Sender: FDA-Public Use
  Company Number: US-PFIZER INC-202101341420

PATIENT
  Age: 53 Year
  Sex: Male

DRUGS (1)
  1. XELJANZ [Suspect]
     Active Substance: TOFACITINIB CITRATE
     Indication: Rheumatoid arthritis
     Dosage: 5 MG, 2X/DAY
     Route: 048
     Dates: start: 20210909

REACTIONS (5)
  - Cough [Recovered/Resolved]
  - Somnolence [Recovered/Resolved]
  - Memory impairment [Unknown]
  - Bronchitis [Recovered/Resolved]
  - Product dose omission issue [Unknown]
